FAERS Safety Report 4597857-0 (Version None)
Quarter: 2005Q1

REPORT INFORMATION
  Report Type: 
  Country: None (occurrence: None)
  Receive Date: 20050125
  Receipt Date: 20040825
  Transmission Date: 20050727
  Serious: No
  Sender: FDA-Public Use
  Company Number: USA030332821

PATIENT
  Age: 79 Year
  Sex: Female
  Weight: 70 kg

DRUGS (4)
  1. FORTEO [Suspect]
     Indication: BONE DENSITY DECREASED
     Dosage: 20 UG / 1 DAY
     Dates: start: 20030329, end: 20040805
  2. FORTEO [Suspect]
     Indication: OSTEOPOROSIS
     Dosage: 20 UG / 1 DAY
     Dates: start: 20030329, end: 20040805
  3. AVALIDE [Concomitant]
  4. MULTI-VITAMINS [Concomitant]

REACTIONS (9)
  - ASTHENIA [None]
  - DIZZINESS [None]
  - FATIGUE [None]
  - FEELING ABNORMAL [None]
  - HEART RATE DECREASED [None]
  - HEART RATE INCREASED [None]
  - HERPES ZOSTER [None]
  - INSOMNIA [None]
  - MUSCULAR WEAKNESS [None]
